FAERS Safety Report 6500203-6 (Version None)
Quarter: 2009Q4

REPORT INFORMATION
  Report Type: 
  Country: None (occurrence: None)
  Receive Date: 20091214
  Receipt Date: 20091214
  Transmission Date: 20100525
  Serious: Yes (Life-Threatening, Disabling, Other)
  Sender: FDA-Public Use
  Company Number: None

PATIENT
  Age: 53 Year
  Sex: Male
  Weight: 80.7403 kg

DRUGS (1)
  1. EFFEXOR [Suspect]
     Dosage: 225 MG X 1 PILL AM = EXTENDED RELEASE TABS NOTE: THEY DID NOT SEND ME MEDICATION GUIDE ANYMORE
     Dates: start: 20090301, end: 20091119

REACTIONS (4)
  - BACK PAIN [None]
  - NERVE COMPRESSION [None]
  - ROAD TRAFFIC ACCIDENT [None]
  - WEIGHT DECREASED [None]
